FAERS Safety Report 20999237 (Version 1)
Quarter: 2022Q2

REPORT INFORMATION
  Report Type: Spontaneous
  Country: CN (occurrence: CN)
  Receive Date: 20220623
  Receipt Date: 20220623
  Transmission Date: 20220721
  Serious: Yes (Other)
  Sender: FDA-Public Use
  Company Number: CN-KYOWAKIRIN-2022AKK009346

PATIENT

DRUGS (2)
  1. FILGRASTIM [Suspect]
     Active Substance: FILGRASTIM
     Indication: Product used for unknown indication
     Dosage: UNK
     Route: 058
  2. FILGRASTIM [Suspect]
     Active Substance: FILGRASTIM
     Indication: Product used for unknown indication
     Dosage: UNK
     Route: 058

REACTIONS (14)
  - Anaphylactic shock [Unknown]
  - Hypersensitivity [Unknown]
  - Mania [Unknown]
  - Induration [Unknown]
  - Dyspnoea [Unknown]
  - Bone pain [Unknown]
  - Nausea [Unknown]
  - Vomiting [Unknown]
  - Pyrexia [Unknown]
  - Myalgia [Unknown]
  - Rash [Unknown]
  - White blood cell count increased [Unknown]
  - Musculoskeletal pain [Unknown]
  - Arthralgia [Unknown]
